FAERS Safety Report 10270735 (Version 2)
Quarter: 2014Q3

REPORT INFORMATION
  Report Type: Spontaneous
  Country: IT (occurrence: None)
  Receive Date: 20140626
  Receipt Date: 20140731
  Transmission Date: 20150326
  Serious: Yes (Hospitalization)
  Sender: FDA-Public Use
  Company Number: 2014AP002578

PATIENT
  Age: 34 Year
  Sex: Female

DRUGS (3)
  1. RAMIPRIL. [Suspect]
     Active Substance: RAMIPRIL
     Indication: INTENTIONAL SELF-INJURY
     Dosage: SINGLE
     Route: 048
     Dates: start: 20130925, end: 20130925
  2. PREDNISONE. [Suspect]
     Active Substance: PREDNISONE
     Indication: INTENTIONAL SELF-INJURY
     Dosage: SINGLE
     Route: 048
     Dates: start: 20130925, end: 20130925
  3. AMLODIPINE BESYLATE. [Suspect]
     Active Substance: AMLODIPINE BESYLATE
     Indication: INTENTIONAL SELF-INJURY
     Dosage: SINGLE
     Route: 048
     Dates: start: 20130925, end: 20130925

REACTIONS (3)
  - Hypotension [None]
  - Intentional self-injury [None]
  - Drug abuse [None]

NARRATIVE: CASE EVENT DATE: 20130925
